FAERS Safety Report 9652587 (Version 2)
Quarter: 2013Q4

REPORT INFORMATION
  Report Type: Spontaneous
  Country: US (occurrence: US)
  Receive Date: 20131029
  Receipt Date: 20131029
  Transmission Date: 20140711
  Serious: Yes (Other)
  Sender: FDA-Public Use
  Company Number: US-009507513-2011SP031783

PATIENT
  Age: 43 Year
  Sex: Female

DRUGS (7)
  1. SAPHRIS [Suspect]
     Indication: AFFECTIVE DISORDER
     Dosage: 5 MG, HS
     Route: 048
     Dates: start: 20110526, end: 20110610
  2. SAPHRIS [Suspect]
     Indication: PSYCHOTIC DISORDER
  3. SAPHRIS [Suspect]
     Indication: BIPOLAR I DISORDER
  4. KLONOPIN [Concomitant]
     Dosage: UPDATE (26AUG2011)
  5. PROZAC [Concomitant]
     Dosage: UPDATE (26AUG2011)
     Dates: start: 20060726
  6. TRAZODONE HYDROCHLORIDE [Concomitant]
     Dosage: UPDATE (26AUG2011)
     Dates: start: 20090105
  7. AMBIEN [Concomitant]

REACTIONS (36)
  - Aphasia [Not Recovered/Not Resolved]
  - Memory impairment [Not Recovered/Not Resolved]
  - Amnesia [Unknown]
  - Weight decreased [Not Recovered/Not Resolved]
  - Decreased appetite [Not Recovered/Not Resolved]
  - Ageusia [Not Recovered/Not Resolved]
  - Toothache [Not Recovered/Not Resolved]
  - Insomnia [Not Recovered/Not Resolved]
  - Vision blurred [Not Recovered/Not Resolved]
  - Disturbance in attention [Not Recovered/Not Resolved]
  - Anxiety [Not Recovered/Not Resolved]
  - Depression [Not Recovered/Not Resolved]
  - Confusional state [Not Recovered/Not Resolved]
  - Incorrect route of drug administration [Unknown]
  - Incontinence [Not Recovered/Not Resolved]
  - Fear [Not Recovered/Not Resolved]
  - Hypoaesthesia oral [Not Recovered/Not Resolved]
  - Gait disturbance [Not Recovered/Not Resolved]
  - Muscle twitching [Not Recovered/Not Resolved]
  - Underdose [Unknown]
  - Inappropriate schedule of drug administration [Unknown]
  - Headache [Not Recovered/Not Resolved]
  - Nausea [Not Recovered/Not Resolved]
  - Speech disorder [Not Recovered/Not Resolved]
  - Hyperhidrosis [Not Recovered/Not Resolved]
  - Joint swelling [Not Recovered/Not Resolved]
  - Choking [Not Recovered/Not Resolved]
  - Feeling hot [Not Recovered/Not Resolved]
  - Chills [Not Recovered/Not Resolved]
  - Feeling abnormal [Unknown]
  - Fear [Unknown]
  - Movement disorder [Not Recovered/Not Resolved]
  - Dysphagia [Not Recovered/Not Resolved]
  - Dizziness [Not Recovered/Not Resolved]
  - Muscle twitching [Not Recovered/Not Resolved]
  - Tremor [Not Recovered/Not Resolved]
